FAERS Safety Report 20419410 (Version 2)
Quarter: 2022Q1

REPORT INFORMATION
  Report Type: Spontaneous
  Country: PT (occurrence: PT)
  Receive Date: 20220203
  Receipt Date: 20220215
  Transmission Date: 20220423
  Serious: Yes (Hospitalization, Other)
  Sender: FDA-Public Use
  Company Number: PT-TEVA-2022-PT-2003280

PATIENT
  Age: 80 Year
  Sex: Female

DRUGS (3)
  1. VALPROIC ACID [Suspect]
     Active Substance: VALPROIC ACID
     Indication: Bipolar I disorder
     Route: 065
     Dates: end: 2018
  2. LITHIUM [Suspect]
     Active Substance: LITHIUM
     Indication: Bipolar I disorder
     Dosage: 600 MILLIGRAM DAILY;
     Route: 065
  3. OLANZAPINE [Suspect]
     Active Substance: OLANZAPINE
     Indication: Bipolar I disorder
     Dosage: AT TIMES, SHE HAD RECEIVED SIGNIFICANTLY HIGHER DOSES OF OLANZAPINE AT HOME AS COMPARED TO THE DO...
     Route: 065

REACTIONS (5)
  - Leukopenia [Unknown]
  - Hyperammonaemia [Unknown]
  - Confusional state [Unknown]
  - Pleurothotonus [Recovered/Resolved]
  - Incorrect dose administered [Unknown]
